FAERS Safety Report 5374518-1 (Version None)
Quarter: 2007Q2

REPORT INFORMATION
  Report Type: 
  Country: None (occurrence: None)
  Receive Date: 20070627
  Receipt Date: 20060501
  Transmission Date: 20071010
  Serious: Yes (Death)
  Sender: FDA-Public Use
  Company Number: 447184

PATIENT
  Age: 68 Year
  Sex: Male

DRUGS (1)
  1. XELODA [Suspect]
     Indication: PANCREATIC CARCINOMA
     Dosage: 1000 MG/M2 2 PER DAY ORAL
     Route: 048
     Dates: start: 20060406, end: 20060409

REACTIONS (2)
  - HEPATIC FAILURE [None]
  - PANCREATIC CARCINOMA [None]
